FAERS Safety Report 11716910 (Version 3)
Quarter: 2015Q4

REPORT INFORMATION
  Report Type: Spontaneous
  Country: US (occurrence: US)
  Receive Date: 20151104
  Receipt Date: 20151120
  Transmission Date: 20160304
  Serious: No
  Sender: FDA-Public Use
  Company Number: US-ELI_LILLY_AND_COMPANY-US201105001284

PATIENT
  Sex: Female

DRUGS (16)
  1. FORTEO [Suspect]
     Active Substance: TERIPARATIDE
     Dosage: 20 UG, QD
  2. ARAVA [Concomitant]
     Active Substance: LEFLUNOMIDE
  3. FORTEO [Suspect]
     Active Substance: TERIPARATIDE
     Indication: OSTEOPOROSIS
     Dosage: 20 UG, QD
     Route: 065
     Dates: start: 20110316
  4. REMICADE [Concomitant]
     Active Substance: INFLIXIMAB
  5. LASIX [Concomitant]
     Active Substance: FUROSEMIDE
  6. FORTEO [Suspect]
     Active Substance: TERIPARATIDE
     Dosage: 20 UG, QD
  7. FORTEO [Suspect]
     Active Substance: TERIPARATIDE
     Dosage: 20 UG, QD
  8. FORTEO [Suspect]
     Active Substance: TERIPARATIDE
     Dosage: 20 UG, QD
  9. PROZAC [Concomitant]
     Active Substance: FLUOXETINE HYDROCHLORIDE
  10. FLONASE [Concomitant]
     Active Substance: FLUTICASONE PROPIONATE
  11. SPIRIVA [Concomitant]
     Active Substance: TIOTROPIUM BROMIDE MONOHYDRATE
  12. FORTEO [Suspect]
     Active Substance: TERIPARATIDE
     Dosage: 20 UG, QD
  13. LOTREL [Concomitant]
     Active Substance: AMLODIPINE BESYLATE\BENAZEPRIL HYDROCHLORIDE
  14. TEKTURNA [Concomitant]
     Active Substance: ALISKIREN HEMIFUMARATE
  15. ZOCOR [Concomitant]
     Active Substance: SIMVASTATIN
  16. ADVAIR HFA [Concomitant]
     Active Substance: FLUTICASONE PROPIONATE\SALMETEROL XINAFOATE

REACTIONS (20)
  - Cough [Unknown]
  - Bronchitis [Not Recovered/Not Resolved]
  - Fall [Recovered/Resolved]
  - Stress [Unknown]
  - Hair disorder [Unknown]
  - Feeling cold [Unknown]
  - Feeling abnormal [Unknown]
  - Visual impairment [Unknown]
  - Nervous system disorder [Unknown]
  - Pulmonary congestion [Unknown]
  - Back pain [Not Recovered/Not Resolved]
  - Pain in extremity [Not Recovered/Not Resolved]
  - Hair texture abnormal [Unknown]
  - Spinal deformity [Not Recovered/Not Resolved]
  - Nervousness [Unknown]
  - Confusional state [Unknown]
  - Osteoarthritis [Unknown]
  - Cataract [Not Recovered/Not Resolved]
  - Nail disorder [Unknown]
  - Memory impairment [Unknown]

NARRATIVE: CASE EVENT DATE: 2011
